FAERS Safety Report 9929973 (Version 2)
Quarter: 2014Q2

REPORT INFORMATION
  Report Type: Report from Study
  Country: US (occurrence: US)
  Receive Date: 20140227
  Receipt Date: 20140428
  Transmission Date: 20141212
  Serious: Yes (Hospitalization)
  Sender: FDA-Public Use
  Company Number: US-BMSGILMSD-2014-0095210

PATIENT
  Sex: Male

DRUGS (2)
  1. EFAVIRENZ/EMTRICITABINE/TENOFOVIR DISOPROXIL FUMARATE [Suspect]
     Indication: ACQUIRED IMMUNODEFICIENCY SYNDROME
     Dosage: 1 DF, UNK
     Route: 048
  2. BACTRIM DS [Concomitant]
     Indication: ANTIFUNGAL PROPHYLAXIS
     Dosage: 1 DF, UNK
     Route: 048

REACTIONS (1)
  - Malaise [Recovered/Resolved]
